FAERS Safety Report 9258292 (Version 1)
Quarter: 2013Q2

REPORT INFORMATION
  Report Type: Report from Study
  Country: BR (occurrence: BR)
  Receive Date: 20130426
  Receipt Date: 20130426
  Transmission Date: 20140414
  Serious: Yes (Hospitalization, Other)
  Sender: FDA-Public Use
  Company Number: BR-ROCHE-787497

PATIENT
  Age: 53 Year
  Sex: Female
  Weight: 64 kg

DRUGS (13)
  1. RITUXIMAB [Suspect]
     Indication: RHEUMATOID ARTHRITIS
     Route: 042
     Dates: start: 20100901, end: 201009
  2. RITUXIMAB [Suspect]
     Route: 042
     Dates: start: 20110719, end: 20110816
  3. RITUXIMAB [Suspect]
     Route: 042
     Dates: start: 20120904, end: 20120904
  4. RITUXIMAB [Suspect]
     Route: 042
  5. MAREVAN [Concomitant]
     Route: 065
  6. PANTOPRAZOLE [Concomitant]
     Route: 065
  7. SYNTHROID [Concomitant]
     Route: 065
  8. ENDOFOLIN [Concomitant]
     Route: 065
  9. IMURAN [Concomitant]
     Route: 065
  10. SILDENAFIL [Concomitant]
     Route: 065
  11. METHOTREXATE [Concomitant]
     Dosage: FREQUENCY:10 TABLET PER WEEK, REPORTED AS METHOTREXATO
     Route: 065
  12. LIPITOR [Concomitant]
  13. MOTILIUM (BRAZIL) [Concomitant]

REACTIONS (9)
  - Bone disorder [Unknown]
  - Bone disorder [Recovered/Resolved]
  - Arthropathy [Not Recovered/Not Resolved]
  - Arthralgia [Not Recovered/Not Resolved]
  - Ill-defined disorder [Unknown]
  - Nasal congestion [Not Recovered/Not Resolved]
  - Hypersensitivity [Recovering/Resolving]
  - Oral candidiasis [Unknown]
  - Influenza [Unknown]
